FAERS Safety Report 22399623 (Version 1)
Quarter: 2023Q2

REPORT INFORMATION
  Report Type: Spontaneous
  Country: RU (occurrence: RU)
  Receive Date: 20230602
  Receipt Date: 20230602
  Transmission Date: 20230722
  Serious: Yes (Other)
  Sender: FDA-Public Use
  Company Number: RU-Merz Pharmaceuticals GmbH-23-01625

PATIENT
  Age: 40 Year
  Sex: Female
  Weight: 50 kg

DRUGS (8)
  1. XEOMIN [Suspect]
     Active Substance: INCOBOTULINUMTOXINA
     Indication: Skin cosmetic procedure
     Dates: start: 20230507, end: 20230507
  2. XEOMIN [Suspect]
     Active Substance: INCOBOTULINUMTOXINA
     Indication: Skin cosmetic procedure
     Dates: start: 20230105, end: 20230105
  3. XEOMIN [Suspect]
     Active Substance: INCOBOTULINUMTOXINA
     Indication: Skin wrinkling
  4. RADIESSE [Concomitant]
     Active Substance: TRIBASIC CALCIUM PHOSPHATE
     Indication: Skin cosmetic procedure
     Dates: start: 202208, end: 202208
  5. RADIESSE [Concomitant]
     Active Substance: TRIBASIC CALCIUM PHOSPHATE
     Dates: start: 202301, end: 202301
  6. RADIESSE [Concomitant]
     Active Substance: TRIBASIC CALCIUM PHOSPHATE
     Dates: start: 20230507, end: 20230507
  7. DEXAMETHASONE [Concomitant]
     Active Substance: DEXAMETHASONE
  8. CHLOROPYRAMINE HYDROCHLORIDE [Concomitant]
     Active Substance: CHLOROPYRAMINE HYDROCHLORIDE

REACTIONS (2)
  - Injection site necrosis [Recovering/Resolving]
  - Vascular occlusion [Recovering/Resolving]

NARRATIVE: CASE EVENT DATE: 20230507
